FAERS Safety Report 23945534 (Version 3)
Quarter: 2024Q2

REPORT INFORMATION
  Report Type: Spontaneous
  Country: CN (occurrence: CN)
  Receive Date: 20240606
  Receipt Date: 20240613
  Transmission Date: 20240716
  Serious: Yes (Death, Life-Threatening, Hospitalization)
  Sender: FDA-Public Use
  Company Number: CN-MLMSERVICE-20240524-PI075055-00128-1

PATIENT
  Age: 65 Year
  Sex: Male

DRUGS (6)
  1. DOXORUBICIN HYDROCHLORIDE [Suspect]
     Active Substance: DOXORUBICIN HYDROCHLORIDE
     Indication: Follicular lymphoma
     Dosage: G-CHOP REGIMEN, 6 CYCLES
     Dates: start: 202206, end: 202210
  2. PREDNISONE [Suspect]
     Active Substance: PREDNISONE
     Indication: Follicular lymphoma
     Dosage: G-CHOP REGIMEN, 6 CYCLES
     Dates: start: 202206, end: 202210
  3. CYCLOPHOSPHAMIDE [Suspect]
     Active Substance: CYCLOPHOSPHAMIDE
     Indication: Follicular lymphoma
     Dosage: G-CHOP REGIMEN, 6 CYCLES
     Dates: start: 202206, end: 202210
  4. VINCRISTINE [Suspect]
     Active Substance: VINCRISTINE
     Indication: Follicular lymphoma
     Dosage: G-CHOP REGIMEN, 6 CYCLES
     Dates: start: 202206, end: 202210
  5. OBINUTUZUMAB [Suspect]
     Active Substance: OBINUTUZUMAB
     Indication: Follicular lymphoma
     Dosage: G-CHOP REGIMEN, 6 CYCLES
     Dates: start: 202206, end: 202210
  6. OBINUTUZUMAB [Suspect]
     Active Substance: OBINUTUZUMAB
     Dosage: CONSOLIDATION
     Dates: start: 202212, end: 202212

REACTIONS (2)
  - Respiratory failure [Fatal]
  - COVID-19 [Not Recovered/Not Resolved]

NARRATIVE: CASE EVENT DATE: 20230101
